FAERS Safety Report 22362653 (Version 1)
Quarter: 2023Q2

REPORT INFORMATION
  Report Type: Spontaneous
  Country: CN (occurrence: CN)
  Receive Date: 20230524
  Receipt Date: 20230524
  Transmission Date: 20230722
  Serious: Yes (Hospitalization, Other)
  Sender: FDA-Public Use
  Company Number: CN-009507513-2305CHN007197

PATIENT
  Age: 70 Year
  Sex: Male

DRUGS (6)
  1. KEYTRUDA [Suspect]
     Active Substance: PEMBROLIZUMAB
     Indication: Lung adenocarcinoma
     Dosage: 200 MILLIGRAM, EVERY 30 DAYS
     Route: 041
     Dates: start: 20230208, end: 20230208
  2. KEYTRUDA [Suspect]
     Active Substance: PEMBROLIZUMAB
     Dosage: 200 MILLIGRAM, EVERY 30 DAYS
     Route: 041
     Dates: start: 20230304, end: 20230304
  3. CARBOPLATIN [Suspect]
     Active Substance: CARBOPLATIN
     Indication: Lung adenocarcinoma
     Dosage: 400 MILLIGRAM, EVERY 30 DAYS
     Route: 041
     Dates: start: 20230208, end: 20230208
  4. CARBOPLATIN [Suspect]
     Active Substance: CARBOPLATIN
     Dosage: 400 MILLIGRAM, EVERY 30 DAYS
     Route: 041
     Dates: start: 20230304, end: 20230304
  5. PEMETREXED DISODIUM [Suspect]
     Active Substance: PEMETREXED DISODIUM
     Indication: Lung adenocarcinoma
     Dosage: 800 MILLIGRAM, EVERY 30 DAYS
     Route: 041
     Dates: start: 20230208, end: 20230208
  6. PEMETREXED DISODIUM [Suspect]
     Active Substance: PEMETREXED DISODIUM
     Dosage: 800 MILLIGRAM, EVERY 30 DAYS
     Route: 041
     Dates: start: 20230304, end: 20230304

REACTIONS (2)
  - Myelosuppression [Recovering/Resolving]
  - Inappropriate schedule of product administration [Unknown]

NARRATIVE: CASE EVENT DATE: 20230304
